FAERS Safety Report 14325978 (Version 14)
Quarter: 2018Q2

REPORT INFORMATION
  Report Type: Spontaneous
  Country: DE (occurrence: DE)
  Receive Date: 20171226
  Receipt Date: 20180608
  Transmission Date: 20180711
  Serious: Yes (Hospitalization, Other)
  Sender: FDA-Public Use
  Company Number: PHHY2017DE178406

PATIENT
  Sex: Male

DRUGS (18)
  1. DOXORUBICIN [Suspect]
     Active Substance: DOXORUBICIN
     Indication: B-CELL LYMPHOMA
     Dosage: 95 MG, QD
     Route: 042
     Dates: start: 20171012
  2. PEGFILGRASTIM [Suspect]
     Active Substance: PEGFILGRASTIM
     Dosage: 6 MG, QD
     Route: 058
     Dates: start: 20171111
  3. SIMVASTATIN. [Concomitant]
     Active Substance: SIMVASTATIN
     Indication: HYPERCHOLESTEROLAEMIA
     Dosage: 20 MG, QD
     Route: 048
     Dates: start: 20171010
  4. TAMSULOSIN [Concomitant]
     Active Substance: TAMSULOSIN
     Dosage: 20 MG, QD
  5. ASPIRIN. [Concomitant]
     Active Substance: ASPIRIN
     Indication: PROPHYLAXIS
     Dosage: 100 MG, QD
     Route: 048
     Dates: start: 20171010
  6. LISINOPRIL. [Concomitant]
     Active Substance: LISINOPRIL
     Indication: ANGIOTENSIN CONVERTING ENZYME DECREASED
     Dosage: 20 MG, QD
     Route: 048
     Dates: start: 20171010
  7. PREDNISOLONE. [Suspect]
     Active Substance: PREDNISOLONE
     Dosage: 1 OT, QD
     Route: 042
     Dates: start: 20171207
  8. VINCRISTINE [Suspect]
     Active Substance: VINCRISTINE
     Dosage: 1 DF, QD
     Route: 042
  9. TAMSULOSIN [Concomitant]
     Active Substance: TAMSULOSIN
     Indication: BENIGN PROSTATIC HYPERPLASIA
     Dosage: 4 MG, QD
     Route: 048
     Dates: start: 20171010
  10. PREDNISOLONE. [Suspect]
     Active Substance: PREDNISOLONE
     Indication: B-CELL LYMPHOMA
     Dosage: 500 MG, QD
     Route: 042
     Dates: start: 20171012, end: 20171012
  11. CYCLOPHOSPHAMIDE. [Suspect]
     Active Substance: CYCLOPHOSPHAMIDE
     Indication: B-CELL LYMPHOMA
     Dosage: 1400 MG, QD (1 TIME A DAY FOR 1 DAY)
     Route: 042
     Dates: start: 20171012
  12. CYCLOPHOSPHAMIDE. [Suspect]
     Active Substance: CYCLOPHOSPHAMIDE
     Dosage: 1 OT, QD
     Route: 042
     Dates: start: 20171207
  13. VINCRISTINE [Suspect]
     Active Substance: VINCRISTINE
     Indication: B-CELL LYMPHOMA
     Dosage: 3.12 MG, QD (1 TIME A DAY FOR 1 DAY)
     Route: 042
     Dates: start: 20171012, end: 20171012
  14. TAMSULOSIN [Concomitant]
     Active Substance: TAMSULOSIN
     Dosage: 20 MG, UNK
     Dates: start: 20171010
  15. PEGFILGRASTIM [Suspect]
     Active Substance: PEGFILGRASTIM
     Indication: B-CELL LYMPHOMA
     Dosage: 6 MG, QD
     Route: 042
     Dates: start: 20171015
  16. RITUXIMAB. [Suspect]
     Active Substance: RITUXIMAB
     Indication: B-CELL LYMPHOMA
     Dosage: 660 MG, QD
     Route: 042
     Dates: start: 20171011, end: 20171011
  17. RITUXIMAB. [Suspect]
     Active Substance: RITUXIMAB
     Dosage: UNK
     Route: 042
     Dates: start: 20171206
  18. ZOPICLONE [Concomitant]
     Active Substance: ZOPICLONE
     Indication: SLEEP DISORDER THERAPY
     Dosage: 7.5 MG, QD
     Route: 048
     Dates: start: 20171010

REACTIONS (4)
  - Bronchitis [Not Recovered/Not Resolved]
  - Lung infection [Not Recovered/Not Resolved]
  - Anaemia [Recovered/Resolved]
  - Acute kidney injury [Recovered/Resolved]

NARRATIVE: CASE EVENT DATE: 20171024
